FAERS Safety Report 20561710 (Version 6)
Quarter: 2025Q1

REPORT INFORMATION
  Report Type: Report from Study
  Country: US (occurrence: US)
  Receive Date: 20220307
  Receipt Date: 20250213
  Transmission Date: 20250409
  Serious: Yes (Other)
  Sender: TAKEDA
  Company Number: US-TAKEDA-2020TUS011555

PATIENT
  Sex: Female

DRUGS (1)
  1. VEDOLIZUMAB [Suspect]
     Active Substance: VEDOLIZUMAB
     Indication: Crohn^s disease
     Dosage: 300 MILLIGRAM, Q4WEEKS

REACTIONS (6)
  - Crohn^s disease [Unknown]
  - Neoplasm [Unknown]
  - Anal fistula [Unknown]
  - Incontinence [Unknown]
  - Therapy non-responder [Unknown]
  - Off label use [Unknown]
